FAERS Safety Report 5916854-3 (Version None)
Quarter: 2008Q3

REPORT INFORMATION
  Report Type: 
  Country: None (occurrence: None)
  Receive Date: 20080909
  Receipt Date: 20071214
  Transmission Date: 20090109
  Serious: Yes (Life-Threatening)
  Sender: FDA-Public Use
  Company Number: 163-20785-07120890 (0)

PATIENT
  Age: 4 Year
  Sex: Female
  Weight: 25 kg

DRUGS (12)
  1. THALOMID [Suspect]
     Indication: ASTROCYTOMA
     Dosage: 500 MG, 1 IN 1 D, ORAL
     Route: 048
     Dates: start: 20070614, end: 20071213
  2. THALOMID [Suspect]
     Indication: GLIOMA
     Dosage: 500 MG, 1 IN 1 D, ORAL
     Route: 048
     Dates: start: 20070614, end: 20071213
  3. CYCLOPHOSPHAMIDE [Suspect]
     Indication: ASTROCYTOMA
     Dosage: 62 MG, ALTERNATE W/ETOPOSIDE, ORAL ; ALTERNATE W/ETOPOSIDE, ORAL
     Route: 048
     Dates: start: 20070614, end: 20071024
  4. CYCLOPHOSPHAMIDE [Suspect]
     Indication: GLIOMA
     Dosage: 62 MG, ALTERNATE W/ETOPOSIDE, ORAL ; ALTERNATE W/ETOPOSIDE, ORAL
     Route: 048
     Dates: start: 20070614, end: 20071024
  5. CYCLOPHOSPHAMIDE [Suspect]
     Indication: ASTROCYTOMA
     Dosage: 62 MG, ALTERNATE W/ETOPOSIDE, ORAL ; ALTERNATE W/ETOPOSIDE, ORAL
     Route: 048
     Dates: start: 20071129, end: 20071213
  6. CYCLOPHOSPHAMIDE [Suspect]
     Indication: GLIOMA
     Dosage: 62 MG, ALTERNATE W/ETOPOSIDE, ORAL ; ALTERNATE W/ETOPOSIDE, ORAL
     Route: 048
     Dates: start: 20071129, end: 20071213
  7. CELEBREX [Suspect]
     Indication: GLIOMA
     Dosage: 200 MG, 1 IN 1 D, ORAL
     Route: 048
     Dates: start: 20070614, end: 20071213
  8. ETOPOSIDE [Suspect]
     Indication: GLIOMA
     Dosage: ALTERNATING WITH CYCLOPHOSPHAMIDE
     Dates: start: 20070614, end: 20071213
  9. FENOFIBRATE [Suspect]
     Indication: GLIOMA
     Dosage: 72 MG, QD
     Dates: start: 20070614, end: 20071213
  10. EPOGEN [Concomitant]
  11. NEURONTIN [Concomitant]
  12. TEGRETOL [Concomitant]

REACTIONS (1)
  - NEUTROPHIL COUNT DECREASED [None]
